FAERS Safety Report 10741593 (Version 1)
Quarter: 2015Q1

REPORT INFORMATION
  Report Type: Spontaneous
  Country: US (occurrence: US)
  Receive Date: 20150127
  Receipt Date: 20150127
  Transmission Date: 20150721
  Serious: No
  Sender: FDA-Public Use
  Company Number: US-PFIZER INC-2015027543

PATIENT
  Age: 53 Year
  Sex: Female
  Weight: 83.45 kg

DRUGS (1)
  1. LYRICA [Suspect]
     Active Substance: PREGABALIN
     Indication: NEUROPATHY PERIPHERAL
     Dosage: 100 MG,ONE TWICE A DAY MORNING AND EVENING
     Dates: start: 201401

REACTIONS (6)
  - Pain [Not Recovered/Not Resolved]
  - Mobility decreased [Unknown]
  - Burning sensation [Unknown]
  - Pain in extremity [Unknown]
  - Sensory disturbance [Unknown]
  - Feeling abnormal [Unknown]
